FAERS Safety Report 9377836 (Version 1)
Quarter: 2013Q3

REPORT INFORMATION
  Report Type: Spontaneous
  Country: US (occurrence: US)
  Receive Date: 20130701
  Receipt Date: 20130701
  Transmission Date: 20140515
  Serious: No
  Sender: FDA-Public Use
  Company Number: US-009507513-1306USA014393

PATIENT
  Sex: Female

DRUGS (2)
  1. DR. SCHOLLS CORN REMOVERS [Suspect]
     Indication: PRODUCT USED FOR UNKNOWN INDICATION
     Dosage: UNK, UNKNOWN
     Route: 061
  2. DR. SCHOLLS CORN REMOVERS [Suspect]
     Dosage: UNK, UNKNOWN
     Route: 061

REACTIONS (2)
  - Infection [Unknown]
  - Expired drug administered [Unknown]
